FAERS Safety Report 5287768-X (Version None)
Quarter: 2007Q2

REPORT INFORMATION
  Report Type: 
  Country: None (occurrence: None)
  Receive Date: 20070405
  Receipt Date: 20070321
  Transmission Date: 20071010
  Serious: Yes (Other)
  Sender: FDA-Public Use
  Company Number: FI-JNJFOC-20070305055

PATIENT
  Sex: Male

DRUGS (3)
  1. REMICADE [Suspect]
     Indication: CROHN'S DISEASE
  2. FERROUS MEDICATIONS [Concomitant]
  3. NEXIUM [Concomitant]

REACTIONS (1)
  - ALVEOLITIS ALLERGIC [None]
